FAERS Safety Report 4497870-8 (Version None)
Quarter: 2004Q4

REPORT INFORMATION
  Report Type: 
  Country: None (occurrence: None)
  Receive Date: 20041104
  Receipt Date: 20041022
  Transmission Date: 20050328
  Serious: Yes (Hospitalization)
  Sender: FDA-Public Use
  Company Number: NO-2004-030495

PATIENT
  Age: 18 Year
  Sex: Female

DRUGS (3)
  1. YASMIN [Suspect]
     Indication: CONTRACEPTION
  2. CIPROFLOXACIN [Suspect]
     Indication: PYELONEPHRITIS
  3. PARACET [Concomitant]

REACTIONS (6)
  - DERMATITIS EXFOLIATIVE [None]
  - DYSPNOEA [None]
  - NASAL CONGESTION [None]
  - PHOTOSENSITIVITY REACTION [None]
  - RASH PRURITIC [None]
  - THROAT TIGHTNESS [None]
